FAERS Safety Report 18515973 (Version 1)
Quarter: 2020Q4

REPORT INFORMATION
  Report Type: Spontaneous
  Country: US (occurrence: US)
  Receive Date: 20201117
  Receipt Date: 20201117
  Transmission Date: 20210114
  Serious: No
  Sender: FDA-Public Use
  Company Number: None

PATIENT
  Age: 55 Year
  Sex: Female

DRUGS (1)
  1. CAPECITABINE TAB 500MG [Suspect]
     Active Substance: CAPECITABINE
     Indication: COLORECTAL CANCER
     Route: 048
     Dates: start: 202010, end: 20201117

REACTIONS (6)
  - Stomatitis [None]
  - Neuropathy peripheral [None]
  - Muscle spasms [None]
  - Vomiting projectile [None]
  - Alopecia [None]
  - Therapy interrupted [None]

NARRATIVE: CASE EVENT DATE: 20201117
